FAERS Safety Report 5949283-7 (Version None)
Quarter: 2008Q4

REPORT INFORMATION
  Report Type: 
  Country: None (occurrence: None)
  Receive Date: 20081021
  Receipt Date: 20071130
  Transmission Date: 20090506
  Serious: Yes (Other)
  Sender: FDA-Public Use
  Company Number: HQWYE975906JUL05

PATIENT
  Age: 58 Year
  Sex: Female

DRUGS (3)
  1. PREMARIN [Suspect]
  2. PREMPRO [Suspect]
  3. PROVERA [Suspect]
     Dosage: ORAL
     Route: 048
     Dates: start: 19911218

REACTIONS (4)
  - ARTHRITIS [None]
  - ASTHMA [None]
  - BREAST CANCER [None]
  - CONDITION AGGRAVATED [None]
